FAERS Safety Report 8190702-6 (Version None)
Quarter: 2012Q1

REPORT INFORMATION
  Report Type: 
  Country: None (occurrence: None)
  Receive Date: 20120307
  Receipt Date: 20120228
  Transmission Date: 20120608
  Serious: Yes (Hospitalization)
  Sender: FDA-Public Use
  Company Number: FR-ROCHE-1044402

PATIENT
  Sex: Male

DRUGS (2)
  1. BEVACIZUMAB [Suspect]
     Indication: GLIOBLASTOMA
     Dosage: 10 MG/KG, D1-D15
     Route: 042
     Dates: start: 20111202, end: 20111216
  2. IRINOTECAN HCL [Concomitant]
     Indication: GLIOBLASTOMA
     Dosage: 187.5 MG,  D1-D15
     Dates: start: 20111202

REACTIONS (2)
  - PNEUMOPERITONEUM [None]
  - DIVERTICULUM INTESTINAL [None]
